FAERS Safety Report 15996175 (Version 2)
Quarter: 2019Q1

REPORT INFORMATION
  Report Type: Report from Study
  Country: US (occurrence: US)
  Receive Date: 20190222
  Receipt Date: 20190312
  Transmission Date: 20190418
  Serious: Yes (Hospitalization, Other)
  Sender: FDA-Public Use
  Company Number: US-GILEAD-2019-0392014

PATIENT
  Age: 25 Year
  Sex: Female

DRUGS (12)
  1. ALBUTEROL [SALBUTAMOL] [Concomitant]
     Active Substance: ALBUTEROL
  2. LACTULOSE. [Concomitant]
     Active Substance: LACTULOSE
  3. BACTRIM [Concomitant]
     Active Substance: SULFAMETHOXAZOLE\TRIMETHOPRIM
  4. MEPHYTON [Concomitant]
     Active Substance: PHYTONADIONE
  5. PREVACID [Concomitant]
     Active Substance: LANSOPRAZOLE
  6. ACTIGALL [Concomitant]
     Active Substance: URSODIOL
  7. ASTELIN [AZELASTINE HYDROCHLORIDE] [Concomitant]
     Active Substance: AZELASTINE HYDROCHLORIDE
  8. AZTREONAM LYSINE [Suspect]
     Active Substance: AZTREONAM LYSINE
     Indication: CYSTIC FIBROSIS
     Dosage: 75 MG / INHALATION / TID 28 DAYS ON AND 28 D OFF
     Route: 055
     Dates: start: 20170308
  9. BACTRIM DS [Concomitant]
     Active Substance: SULFAMETHOXAZOLE\TRIMETHOPRIM
  10. CLINDAMYCIN. [Concomitant]
     Active Substance: CLINDAMYCIN
  11. FLONASE [Concomitant]
     Active Substance: FLUTICASONE PROPIONATE
  12. SINGULAIR [Concomitant]
     Active Substance: MONTELUKAST SODIUM

REACTIONS (2)
  - Respiratory disorder [Not Recovered/Not Resolved]
  - Lung transplant [Not Recovered/Not Resolved]
